FAERS Safety Report 6874962 (Version 3)
Quarter: 2020Q3

REPORT INFORMATION
  Report Type: Report from Study
  Country: ES (occurrence: ES)
  Receive Date: 20090107
  Receipt Date: 20100615
  Transmission Date: 20201105
  Serious: Yes (Hospitalization)
  Sender: FDA-Public Use
  Company Number: ES-JNJFOC-20081206162

PATIENT
  Age: 68 Year
  Sex: Male
  Weight: 81 kg

DRUGS (11)
  1. TAPENTADOL [Suspect]
     Active Substance: TAPENTADOL
     Route: 048
  2. TAPENTADOL [Suspect]
     Active Substance: TAPENTADOL
     Route: 048
  3. TAPENTADOL [Suspect]
     Active Substance: TAPENTADOL
     Route: 048
  4. TAPENTADOL [Suspect]
     Active Substance: TAPENTADOL
     Route: 048
  5. NAPROXEN. [Concomitant]
     Active Substance: NAPROXEN
     Route: 065
  6. LYRICA [Concomitant]
     Active Substance: PREGABALIN
     Route: 065
  7. TAPENTADOL [Suspect]
     Active Substance: TAPENTADOL
     Indication: TUMOUR PAIN
     Dosage: 150 MG
     Route: 048
  8. TAPENTADOL [Suspect]
     Active Substance: TAPENTADOL
     Route: 048
  9. OMEPRAZOLE. [Concomitant]
     Active Substance: OMEPRAZOLE
     Route: 065
  10. MORPHINE SULFATE. [Concomitant]
     Active Substance: MORPHINE SULFATE
     Route: 048
  11. PREDNISONE. [Concomitant]
     Active Substance: PREDNISONE
     Route: 065

REACTIONS (7)
  - Refusal of treatment by patient [None]
  - Constipation [None]
  - Neoplasm malignant [None]
  - Spinal cord compression [None]
  - Hyperglycaemia [None]
  - Intestinal perforation [Recovered/Resolved]
  - Prostate cancer metastatic [None]

NARRATIVE: CASE EVENT DATE: 20080627
